FAERS Safety Report 7281401-3 (Version None)
Quarter: 2011Q1

REPORT INFORMATION
  Report Type: 
  Country: None (occurrence: None)
  Receive Date: 20110208
  Receipt Date: 20110127
  Transmission Date: 20110831
  Serious: No
  Sender: FDA-Public Use
  Company Number: US-ELI_LILLY_AND_COMPANY-US201009003669

PATIENT
  Age: 58 Year
  Sex: Male

DRUGS (1)
  1. CIALIS [Suspect]
     Dosage: 10 MG, 2/W
     Dates: start: 20100907

REACTIONS (4)
  - PAIN IN EXTREMITY [None]
  - VISION BLURRED [None]
  - MUSCULOSKELETAL PAIN [None]
  - MYALGIA [None]
